FAERS Safety Report 20419101 (Version 2)
Quarter: 2022Q2

REPORT INFORMATION
  Report Type: Other
  Country: US (occurrence: US)
  Receive Date: 20220203
  Receipt Date: 20220520
  Transmission Date: 20220721
  Serious: Yes (Hospitalization, Other)
  Sender: FDA-Public Use
  Company Number: US-DECIPHERA PHARMACEUTICALS LLC-2022US000050

PATIENT
  Age: 52 Year
  Sex: Female

DRUGS (2)
  1. QINLOCK [Suspect]
     Active Substance: RIPRETINIB
     Indication: Gastrointestinal stromal tumour
     Dosage: 150 MILLIGRAM, QD
     Route: 048
     Dates: start: 20211223, end: 202201
  2. QINLOCK [Suspect]
     Active Substance: RIPRETINIB
     Dosage: 100 MILLIGRAM, QD
     Route: 048

REACTIONS (17)
  - Acute kidney injury [Unknown]
  - Hepatic encephalopathy [Unknown]
  - Cardiac failure [Unknown]
  - Ammonia increased [Unknown]
  - Hypercalcaemia of malignancy [Recovering/Resolving]
  - Mental status changes [Recovering/Resolving]
  - Hyperglycaemia [Unknown]
  - Disease progression [Unknown]
  - Essential hypertension [Unknown]
  - Hepatic enzyme increased [Unknown]
  - Hypernatraemia [Recovered/Resolved]
  - Malnutrition [Unknown]
  - Oral candidiasis [Unknown]
  - Urinary tract infection [Unknown]
  - Pain in extremity [Recovered/Resolved]
  - Palmar-plantar erythrodysaesthesia syndrome [Recovered/Resolved]
  - Product dose omission issue [Unknown]

NARRATIVE: CASE EVENT DATE: 20211201
